FAERS Safety Report 16766521 (Version 1)
Quarter: 2019Q3

REPORT INFORMATION
  Report Type: Spontaneous
  Country: FR (occurrence: FR)
  Receive Date: 20190903
  Receipt Date: 20190903
  Transmission Date: 20191005
  Serious: Yes (Hospitalization)
  Sender: FDA-Public Use
  Company Number: FR-PFIZER INC-2019373289

PATIENT
  Age: 47 Year
  Sex: Female
  Weight: 53 kg

DRUGS (3)
  1. XEROQUEL [Suspect]
     Active Substance: QUETIAPINE FUMARATE
     Dosage: 1 G, SINGLE
     Route: 048
     Dates: start: 20190128, end: 20190128
  2. PRAZEPAM [Suspect]
     Active Substance: PRAZEPAM
     Dosage: 800 MG, SINGLE
     Route: 048
     Dates: start: 20190128, end: 20190128
  3. SERTRALINE HCL [Suspect]
     Active Substance: SERTRALINE HYDROCHLORIDE
     Dosage: 1400 MG, SINGLE
     Route: 048
     Dates: start: 20190128, end: 20190128

REACTIONS (4)
  - Poisoning deliberate [Unknown]
  - Somnolence [Recovered/Resolved]
  - Mydriasis [Recovered/Resolved]
  - Intentional overdose [Unknown]

NARRATIVE: CASE EVENT DATE: 20190128
